FAERS Safety Report 11258358 (Version 4)
Quarter: 2017Q2

REPORT INFORMATION
  Report Type: Report from Study
  Country: US (occurrence: US)
  Receive Date: 20150710
  Receipt Date: 20170412
  Transmission Date: 20170829
  Serious: Yes (Death, Life-Threatening, Other)
  Sender: FDA-Public Use
  Company Number: US-BRISTOL-MYERS SQUIBB COMPANY-BMS-2015-043720

PATIENT
  Age: 64 Year
  Sex: Male
  Weight: 110 kg

DRUGS (4)
  1. PREDNISONE. [Suspect]
     Active Substance: PREDNISONE
     Indication: KIDNEY TRANSPLANT REJECTION
     Dosage: UNK
     Route: 065
     Dates: start: 201311, end: 201505
  2. MYCOPHENOLATE [Suspect]
     Active Substance: MYCOPHENOLIC ACID
     Indication: KIDNEY TRANSPLANT REJECTION
     Dosage: UNK
     Route: 065
     Dates: start: 201311, end: 201408
  3. TACROLIMUS. [Suspect]
     Active Substance: TACROLIMUS
     Indication: KIDNEY TRANSPLANT REJECTION
     Dosage: UNK
     Route: 065
     Dates: start: 201402, end: 201505
  4. BELATACEPT [Suspect]
     Active Substance: BELATACEPT
     Indication: KIDNEY TRANSPLANT REJECTION
     Dosage: 1100 MG, UNK
     Route: 042
     Dates: start: 20131113, end: 20140106

REACTIONS (4)
  - Lung neoplasm malignant [Fatal]
  - Haemothorax [Unknown]
  - Hypotension [Unknown]
  - Pleural effusion [Unknown]

NARRATIVE: CASE EVENT DATE: 201505
